FAERS Safety Report 5596033-2 (Version None)
Quarter: 2007Q4

REPORT INFORMATION
  Report Type: 
  Country: None (occurrence: None)
  Receive Date: 20071218
  Receipt Date: 20061227
  Transmission Date: 20080405
  Serious: Yes (Other)
  Sender: FDA-Public Use
  Company Number: 2006114682

PATIENT
  Sex: Female
  Weight: 89.8 kg

DRUGS (14)
  1. BEXTRA [Suspect]
     Indication: ARTHRITIS
     Dosage: 20 MG (20 MG, 1 IN 1 D), ORAL
     Route: 048
     Dates: start: 20030601
  2. ASPIRIN [Concomitant]
  3. CALTRATE (CALCIUM CARBONATE) [Concomitant]
  4. SYNTHROID [Concomitant]
  5. QUININE SULFATE [Concomitant]
  6. LISINOPRIL [Concomitant]
  7. ZOCOR [Concomitant]
  8. ZYRTEC [Concomitant]
  9. DITROPAN XL [Concomitant]
  10. NEXIUM [Concomitant]
  11. VITAMIN B12 [Concomitant]
  12. VITAMIN C (VITAMIN C) [Concomitant]
  13. VITAMIN E [Concomitant]
  14. IRON (IRON) [Concomitant]

REACTIONS (1)
  - RENAL FAILURE CHRONIC [None]
